FAERS Safety Report 19485802 (Version 1)
Quarter: 2021Q3

REPORT INFORMATION
  Report Type: Spontaneous
  Country: US (occurrence: US)
  Receive Date: 20210702
  Receipt Date: 20210702
  Transmission Date: 20211014
  Serious: Yes (Other)
  Sender: FDA-Public Use
  Company Number: US-SA-2021SA215981

PATIENT

DRUGS (1)
  1. DUPILUMAB [Suspect]
     Active Substance: DUPILUMAB

REACTIONS (4)
  - Cutaneous vasculitis [Unknown]
  - Cerebrovascular accident [Unknown]
  - Eosinophilic pleural effusion [Unknown]
  - Eosinophilia [Unknown]
